FAERS Safety Report 18348405 (Version 1)
Quarter: 2020Q4

REPORT INFORMATION
  Report Type: Report from Study
  Country: AU (occurrence: AU)
  Receive Date: 20201006
  Receipt Date: 20201006
  Transmission Date: 20210114
  Serious: Yes (Hospitalization, Other)
  Sender: FDA-Public Use
  Company Number: AU-AMGEN-AUSSL2020144626

PATIENT
  Age: 75 Year
  Sex: Male

DRUGS (2)
  1. KYPROLIS [Suspect]
     Active Substance: CARFILZOMIB
     Dosage: 56 MILLIGRAM/SQ. METER, ON DAY1,2,8,9,15 +16, 28DAYS PER CYCLE (C3D2))
     Route: 042
     Dates: start: 20201002
  2. KYPROLIS [Suspect]
     Active Substance: CARFILZOMIB
     Indication: PLASMA CELL MYELOMA
     Dosage: 56 MILLIGRAM/SQ. METER,DAY1,2,8,9,15 +16, 28DAYS PER CYCLE
     Route: 042
     Dates: end: 20200903

REACTIONS (10)
  - Fatigue [Not Recovered/Not Resolved]
  - Hypotension [Recovering/Resolving]
  - Decreased appetite [Not Recovered/Not Resolved]
  - Body temperature decreased [Recovering/Resolving]
  - Fall [Unknown]
  - Malaise [Not Recovered/Not Resolved]
  - Urinary tract infection [Not Recovered/Not Resolved]
  - Nausea [Unknown]
  - Weight decreased [Not Recovered/Not Resolved]
  - Pyrexia [Recovering/Resolving]

NARRATIVE: CASE EVENT DATE: 2020
